FAERS Safety Report 13558921 (Version 1)
Quarter: 2017Q2

REPORT INFORMATION
  Report Type: Spontaneous
  Country: US (occurrence: US)
  Receive Date: 20170518
  Receipt Date: 20170518
  Transmission Date: 20170830
  Serious: Yes (Hospitalization)
  Sender: FDA-Public Use
  Company Number: US-PROCTER+GAMBLE_PHARMACEUTICALS-CIP07002569

PATIENT
  Age: 63 Year
  Sex: Female

DRUGS (12)
  1. ACTONEL [Suspect]
     Active Substance: RISEDRONATE SODIUM
     Indication: OSTEOPOROSIS POSTMENOPAUSAL
     Dosage: 5 MG DAILY
     Route: 048
     Dates: start: 200111, end: 20060417
  2. TOFRANIL [Concomitant]
     Active Substance: IMIPRAMINE HYDROCHLORIDE
     Dosage: 25 MG REGIMEN UNKNOWN
  3. ASPIRIN. [Concomitant]
     Active Substance: ASPIRIN
     Dosage: 81 MG DAILY
  4. MAXZIDE [Concomitant]
     Active Substance: HYDROCHLOROTHIAZIDE\TRIAMTERENE
     Dosage: 25 MG TWICE DAILY
  5. ACULAR [Concomitant]
     Active Substance: KETOROLAC TROMETHAMINE
     Dosage: 0.5 %, UNK
     Route: 047
  6. TRANXENE T-TAB [Concomitant]
     Active Substance: CLORAZEPATE DIPOTASSIUM
     Dosage: 7.5 MG AT BEDTIME
  7. ZYRTEC [Concomitant]
     Active Substance: CETIRIZINE HYDROCHLORIDE
     Dosage: 10 MG AS NEEDED
  8. FOSAMAX [Suspect]
     Active Substance: ALENDRONATE SODIUM
     Indication: OSTEOPOROSIS POSTMENOPAUSAL
     Dosage: 10 MG DAILY
     Route: 048
     Dates: start: 19970730, end: 200111
  9. CALCIUM [Concomitant]
     Active Substance: CALCIUM
  10. VITAMIN D                          /00107901/ [Concomitant]
     Active Substance: ERGOCALCIFEROL
  11. LOPRESSOR [Concomitant]
     Active Substance: METOPROLOL TARTRATE
     Dosage: 50 MG TWICE DAILY
  12. HYDROCORTISONE. [Concomitant]
     Active Substance: HYDROCORTISONE
     Dosage: 2.5 % AS NEEDED

REACTIONS (19)
  - Fascial infection [Unknown]
  - Dental fistula [Recovered/Resolved]
  - Bone loss [Unknown]
  - Gingival pain [Unknown]
  - Impaired healing [Recovered/Resolved]
  - Jaw fracture [Recovered/Resolved]
  - Tooth loss [Unknown]
  - Osteonecrosis of jaw [Unknown]
  - Gingival swelling [Recovered/Resolved]
  - Gingival bleeding [Recovered/Resolved]
  - Pathological fracture [Recovered/Resolved]
  - Malocclusion [Recovered/Resolved]
  - Postoperative wound infection [Unknown]
  - Osteomyelitis [Unknown]
  - Implant site inflammation [Recovered/Resolved]
  - Device related infection [Recovered/Resolved]
  - Tooth abscess [Recovered/Resolved]
  - Gingivitis [Recovered/Resolved]
  - Device failure [Recovered/Resolved]

NARRATIVE: CASE EVENT DATE: 20031105
